FAERS Safety Report 6278914-X (Version None)
Quarter: 2009Q3

REPORT INFORMATION
  Report Type: 
  Country: None (occurrence: None)
  Receive Date: 20090723
  Receipt Date: 20090714
  Transmission Date: 20100115
  Serious: Yes (Hospitalization)
  Sender: FDA-Public Use
  Company Number: GB-RANBAXY-2006RR-01748

PATIENT
  Age: 27 Year
  Sex: Female

DRUGS (4)
  1. IBUPROFEN [Suspect]
     Indication: MIGRAINE
     Dosage: MAX 6 TABLETS
     Route: 048
     Dates: end: 20060208
  2. AMITRIPTYLINE [Concomitant]
     Dosage: 50 MG, UNK
     Route: 048
  3. BETAHISTINE [Concomitant]
     Dosage: 16 MG, TID
     Route: 048
  4. CYCLIZINE [Concomitant]
     Dosage: 50 MG, TID
     Route: 048

REACTIONS (8)
  - ABDOMINAL PAIN UPPER [None]
  - CONSTIPATION [None]
  - DECREASED APPETITE [None]
  - DIZZINESS [None]
  - HAEMATEMESIS [None]
  - RECTAL HAEMORRHAGE [None]
  - VOMITING [None]
  - WEIGHT DECREASED [None]
